FAERS Safety Report 24722343 (Version 1)
Quarter: 2024Q4

REPORT INFORMATION
  Report Type: Spontaneous
  Country: US (occurrence: None)
  Receive Date: 20241210
  Receipt Date: 20241210
  Transmission Date: 20250115
  Serious: Yes (Hospitalization)
  Sender: Public
  Company Number: None

PATIENT
  Age: 67 Year
  Sex: Male
  Weight: 101 kg

DRUGS (2)
  1. ZOLEDRONIC ACID [Suspect]
     Active Substance: ZOLEDRONIC ACID
     Indication: Neoplasm malignant
     Dosage: 4.00 MGGGGGGGGGGGGGGGGGGG
     Dates: start: 20220211, end: 20220222
  2. ZOLEDRONIC ACID [Suspect]
     Active Substance: ZOLEDRONIC ACID
     Indication: Plasma cell myeloma

REACTIONS (4)
  - Fatigue [None]
  - Dyspepsia [None]
  - Myalgia [None]
  - Hypokinesia [None]

NARRATIVE: CASE EVENT DATE: 20220302
